FAERS Safety Report 9265619 (Version 1)
Quarter: 2013Q2

REPORT INFORMATION
  Report Type: Spontaneous
  Country: GB (occurrence: GB)
  Receive Date: 20130501
  Receipt Date: 20130501
  Transmission Date: 20140414
  Serious: Yes (Congenital Anomaly, Other)
  Sender: FDA-Public Use
  Company Number: GB-MYLANLABS-2013S1008444

PATIENT
  Age: 1 Hour
  Sex: Female

DRUGS (2)
  1. SODIUM VALPROATE [Suspect]
     Route: 064
     Dates: start: 2003
  2. KEPPRA [Concomitant]

REACTIONS (7)
  - Foetal anticonvulsant syndrome [Not Recovered/Not Resolved]
  - Microcephaly [Unknown]
  - Exposure during pregnancy [Unknown]
  - Cyanosis [Unknown]
  - Developmental delay [Unknown]
  - Drug prescribing error [Unknown]
  - Otitis media [Unknown]
